FAERS Safety Report 11801322 (Version 2)
Quarter: 2015Q4

REPORT INFORMATION
  Report Type: Spontaneous
  Country: PT (occurrence: PT)
  Receive Date: 20151204
  Receipt Date: 20151212
  Transmission Date: 20160305
  Serious: Yes (Other)
  Sender: FDA-Public Use
  Company Number: PT-009507513-1512PRT000909

PATIENT
  Age: 69 Year
  Sex: Male
  Weight: 80 kg

DRUGS (1)
  1. IVEMEND [Suspect]
     Active Substance: FOSAPREPITANT DIMEGLUMINE
     Indication: PROPHYLAXIS OF NAUSEA AND VOMITING
     Dosage: 150 MG, CYCLICAL
     Route: 042
     Dates: start: 20151116, end: 20151116

REACTIONS (1)
  - Back pain [Recovered/Resolved]

NARRATIVE: CASE EVENT DATE: 20151116
